FAERS Safety Report 4362827-4 (Version None)
Quarter: 2004Q2

REPORT INFORMATION
  Report Type: 
  Country: None (occurrence: None)
  Receive Date: 20040524
  Receipt Date: 20040511
  Transmission Date: 20050107
  Serious: Yes (Death)
  Sender: FDA-Public Use
  Company Number: DE-JNJFOC-20040502454

PATIENT
  Sex: Female

DRUGS (2)
  1. TOPAMAX [Suspect]
     Indication: EPILEPSY
     Route: 049
     Dates: start: 20031001
  2. TRILEPTAL [Suspect]
     Indication: EPILEPSY
     Route: 065

REACTIONS (1)
  - SUDDEN DEATH [None]
